FAERS Safety Report 12471417 (Version 1)
Quarter: 2016Q2

REPORT INFORMATION
  Report Type: Spontaneous
  Country: JP (occurrence: JP)
  Receive Date: 20160616
  Receipt Date: 20160616
  Transmission Date: 20160815
  Serious: Yes (Other)
  Sender: FDA-Public Use
  Company Number: JP-GLAXOSMITHKLINE-JP2016JPN084458

PATIENT
  Age: 82 Year
  Sex: Male

DRUGS (7)
  1. OXATOMIDE [Interacting]
     Active Substance: OXATOMIDE
     Route: 048
  2. RABEPRAZOLE SODIUM. [Concomitant]
     Active Substance: RABEPRAZOLE SODIUM
  3. PREDNISOLONE. [Concomitant]
     Active Substance: PREDNISOLONE
  4. AMOXICILLIN SODIUM AND SULBACTAM SODIUM [Concomitant]
  5. VALTREX [Suspect]
     Active Substance: VALACYCLOVIR HYDROCHLORIDE
     Route: 048
  6. DICLOFENAC [Interacting]
     Active Substance: DICLOFENAC
     Route: 048
  7. MAGNESIUM OXIDE. [Concomitant]
     Active Substance: MAGNESIUM OXIDE

REACTIONS (6)
  - Drug interaction [Unknown]
  - Hypothyroidism [Unknown]
  - Altered state of consciousness [Recovered/Resolved]
  - Miosis [Unknown]
  - Drug level increased [Unknown]
  - Glossoptosis [Unknown]
